FAERS Safety Report 20499793 (Version 1)
Quarter: 2022Q1

REPORT INFORMATION
  Report Type: Spontaneous
  Country: US (occurrence: US)
  Receive Date: 20220222
  Receipt Date: 20220222
  Transmission Date: 20220423
  Serious: No
  Sender: FDA-Public Use
  Company Number: US-UCBSA-2021009847

PATIENT
  Age: 86 Year
  Sex: Male

DRUGS (3)
  1. LEVETIRACETAM [Suspect]
     Active Substance: LEVETIRACETAM
     Indication: Recurrent cancer
     Dosage: UNKNOWN DOSE
  2. LEVETIRACETAM [Suspect]
     Active Substance: LEVETIRACETAM
     Indication: Off label use
  3. APIXABAN [Concomitant]
     Active Substance: APIXABAN
     Indication: Recurrent cancer
     Dosage: UNKNON DOSE

REACTIONS (1)
  - No adverse event [Unknown]
